FAERS Safety Report 5599391-8 (Version None)
Quarter: 2007Q4

REPORT INFORMATION
  Report Type: 
  Country: None (occurrence: None)
  Receive Date: 20071226
  Receipt Date: 20071126
  Transmission Date: 20080405
  Serious: No
  Sender: FDA-Public Use
  Company Number: 2007PV033766

PATIENT
  Age: 82 Year
  Sex: Female
  Weight: 77.1115 kg

DRUGS (4)
  1. SYMLIN [Suspect]
     Indication: TYPE 2 DIABETES MELLITUS
     Dosage: SC
     Route: 058
     Dates: start: 20070101, end: 20070201
  2. HUMULIN R [Concomitant]
  3. LEVOMIR [Concomitant]
  4. BYETTA [Concomitant]

REACTIONS (1)
  - BLOOD GLUCOSE INCREASED [None]
